FAERS Safety Report 21696278 (Version 1)
Quarter: 2022Q4

REPORT INFORMATION
  Report Type: Spontaneous
  Country: None (occurrence: FR)
  Receive Date: 20221207
  Receipt Date: 20221207
  Transmission Date: 20230112
  Serious: Yes (Other)
  Sender: FDA-Public Use
  Company Number: FR-AFSSAPSAVCN20220916

PATIENT
  Age: 19 Year
  Sex: Female

DRUGS (1)
  1. NITROUS OXIDE [Suspect]
     Active Substance: NITROUS OXIDE
     Indication: Substance use
     Route: 055
     Dates: start: 20221005, end: 20221006

REACTIONS (3)
  - Tremor [Recovered/Resolved]
  - Nervousness [Recovered/Resolved]
  - Tachycardia [Recovered/Resolved]

NARRATIVE: CASE EVENT DATE: 20221006
